FAERS Safety Report 5142109-3 (Version None)
Quarter: 2006Q4

REPORT INFORMATION
  Report Type: 
  Country: None (occurrence: None)
  Receive Date: 20061102
  Receipt Date: 20061024
  Transmission Date: 20070319
  Serious: Yes (Hospitalization)
  Sender: FDA-Public Use
  Company Number: PHBS2006DE16491

PATIENT
  Age: 8 Week
  Sex: Female
  Weight: 5.2 kg

DRUGS (1)
  1. PRAVIDEL [Suspect]
     Indication: ACCIDENTAL EXPOSURE
     Dosage: 1.25 - 1.875 MG/DAY
     Route: 048

REACTIONS (5)
  - ACCIDENTAL EXPOSURE [None]
  - CRYING [None]
  - DRUG TOXICITY [None]
  - PALLOR [None]
  - VOMITING [None]
